FAERS Safety Report 11458930 (Version 1)
Quarter: 2015Q3

REPORT INFORMATION
  Report Type: Spontaneous
  Country: RU (occurrence: RU)
  Receive Date: 20150904
  Receipt Date: 20150904
  Transmission Date: 20151125
  Serious: Yes (Other)
  Sender: FDA-Public Use
  Company Number: RU-BAYER-2015-409076

PATIENT
  Sex: Female

DRUGS (1)
  1. YAZ [Suspect]
     Active Substance: DROSPIRENONE\ETHINYL ESTRADIOL
     Indication: MENSTRUATION IRREGULAR
     Dosage: UNK

REACTIONS (10)
  - Panniculitis [None]
  - Headache [None]
  - Menorrhagia [None]
  - Weight increased [None]
  - Hypotonia [None]
  - Swelling [None]
  - Off label use [None]
  - Breast pain [None]
  - Feeling abnormal [None]
  - Depression [None]
